FAERS Safety Report 25581690 (Version 2)
Quarter: 2025Q3

REPORT INFORMATION
  Report Type: Spontaneous
  Country: US (occurrence: US)
  Receive Date: 20250719
  Receipt Date: 20250728
  Transmission Date: 20251021
  Serious: Yes (Other)
  Sender: AUROBINDO
  Company Number: US-MLMSERVICE-20250603-PI523150-00275-1

PATIENT
  Age: 31 Year
  Sex: Female

DRUGS (12)
  1. QUETIAPINE [Suspect]
     Active Substance: QUETIAPINE
     Indication: Depression
     Route: 065
  2. KETAMINE HYDROCHLORIDE [Suspect]
     Active Substance: KETAMINE HYDROCHLORIDE
     Indication: Major depression
     Route: 042
  3. VENLAFAXINE [Suspect]
     Active Substance: VENLAFAXINE HYDROCHLORIDE
     Indication: Metabolic disorder
     Route: 065
  4. LUMATEPERONE [Suspect]
     Active Substance: LUMATEPERONE
     Indication: Metabolic disorder
     Route: 065
  5. BUPROPION HYDROCHLORIDE [Suspect]
     Active Substance: BUPROPION HYDROCHLORIDE
     Indication: Metabolic disorder
     Route: 065
  6. ESCITALOPRAM [Suspect]
     Active Substance: ESCITALOPRAM OXALATE
     Indication: Metabolic disorder
     Route: 065
  7. ARIPIPRAZOLE [Suspect]
     Active Substance: ARIPIPRAZOLE
     Indication: Metabolic disorder
     Route: 065
  8. MIRTAZAPINE [Suspect]
     Active Substance: MIRTAZAPINE
     Indication: Metabolic disorder
     Route: 065
  9. SERTRALINE [Suspect]
     Active Substance: SERTRALINE HYDROCHLORIDE
     Indication: Metabolic disorder
     Route: 065
  10. CANNABIS SATIVA SUBSP. INDICA TOP [Concomitant]
     Active Substance: CANNABIS SATIVA SUBSP. INDICA TOP
     Indication: Product used for unknown indication
     Dosage: UNK, ONCE A DAY
     Route: 065
  11. VILAZODONE [Concomitant]
     Active Substance: VILAZODONE
     Indication: Sleep disorder
     Route: 065
  12. LURASIDONE [Concomitant]
     Active Substance: LURASIDONE
     Indication: Depression
     Route: 065

REACTIONS (4)
  - Metabolic disorder [Unknown]
  - Psychotic disorder [Recovered/Resolved]
  - Off label use [Unknown]
  - Drug ineffective [Unknown]
